FAERS Safety Report 4771656-9 (Version None)
Quarter: 2005Q3

REPORT INFORMATION
  Report Type: 
  Country: None (occurrence: None)
  Receive Date: 20050915
  Receipt Date: 20050818
  Transmission Date: 20060218
  Serious: Yes (Other)
  Sender: FDA-Public Use
  Company Number: 5789

PATIENT
  Age: 51 Year
  Sex: Female
  Weight: 54.88 kg

DRUGS (11)
  1. CHROMAGEN SOFT GELATIN CAPSULES [Suspect]
     Dates: start: 20050418
  2. TRACLEER TABLETS [Concomitant]
  3. REMERON [Concomitant]
  4. NITROGLYCERIN [Concomitant]
  5. MIRALAX [Concomitant]
  6. DIGOXIN [Concomitant]
  7. PREVACID [Concomitant]
  8. COREG [Concomitant]
  9. TYLENOL [Concomitant]
  10. MVI 3 [Concomitant]
  11. XALATAN [Concomitant]

REACTIONS (4)
  - CHEST DISCOMFORT [None]
  - DIZZINESS [None]
  - HEADACHE [None]
  - PALPITATIONS [None]
